FAERS Safety Report 4361551-1 (Version None)
Quarter: 2004Q2

REPORT INFORMATION
  Report Type: 
  Country: None (occurrence: None)
  Receive Date: 20040521
  Receipt Date: 20040331
  Transmission Date: 20050107
  Serious: No
  Sender: FDA-Public Use
  Company Number: US-GLAXOSMITHKLINE-A0505385A

PATIENT
  Sex: Female

DRUGS (7)
  1. WELLBUTRIN XL [Suspect]
     Indication: DEPRESSION
     Dosage: 150MG PER DAY
     Route: 048
     Dates: start: 20040223
  2. COVERA-HS [Concomitant]
  3. LIPITOR [Concomitant]
  4. DIOVAN HCT [Concomitant]
  5. GLUCOPHAGE [Concomitant]
  6. VICODIN ES [Concomitant]
  7. MOBIC [Concomitant]

REACTIONS (1)
  - PAIN [None]
